FAERS Safety Report 13442542 (Version 1)
Quarter: 2017Q2

REPORT INFORMATION
  Report Type: Spontaneous
  Country: US (occurrence: US)
  Receive Date: 20170413
  Receipt Date: 20170413
  Transmission Date: 20170830
  Serious: Yes (Life-Threatening, Hospitalization)
  Sender: FDA-Public Use
  Company Number: None

PATIENT
  Age: 75 Year
  Sex: Male
  Weight: 65.25 kg

DRUGS (1)
  1. NYSTATIN ORAL SUSP 100000UNIT/ML [Suspect]
     Active Substance: NYSTATIN
     Indication: ORAL CANDIDIASIS
     Dosage: ?          OTHER STRENGTH:UNITS PER ML;QUANTITY:5 ML;?
     Route: 048
     Dates: start: 20170413, end: 20170413

REACTIONS (3)
  - Dyspnoea [None]
  - Fall [None]
  - Unresponsive to stimuli [None]

NARRATIVE: CASE EVENT DATE: 20170413
